FAERS Safety Report 8997084 (Version 1)
Quarter: 2013Q1

REPORT INFORMATION
  Report Type: Spontaneous
  Country: US (occurrence: None)
  Receive Date: 20130102
  Receipt Date: 20130102
  Transmission Date: 20140127
  Serious: No
  Sender: FDA-Public Use
  Company Number: None

PATIENT
  Age: 88 Year
  Sex: Female
  Weight: 71.22 kg

DRUGS (1)
  1. PIOGLITAZONE [Suspect]

REACTIONS (1)
  - Hypersensitivity [None]
